FAERS Safety Report 4951542-1 (Version None)
Quarter: 2006Q1

REPORT INFORMATION
  Report Type: 
  Country: None (occurrence: None)
  Receive Date: 20060317
  Receipt Date: 20060306
  Transmission Date: 20060701
  Serious: Yes (Other)
  Sender: FDA-Public Use
  Company Number: 2006033189

PATIENT
  Age: 51 Year
  Sex: Female
  Weight: 94.3482 kg

DRUGS (3)
  1. DIFLUCAN [Suspect]
     Indication: FUNGAL INFECTION
     Dates: start: 19980101, end: 19980101
  2. ALL OTHER THERAPEUTIC PRODUCST [Concomitant]
  3. INSULIN [Concomitant]

REACTIONS (7)
  - AUTOIMMUNE HEPATITIS [None]
  - BLOOD GLUCOSE INCREASED [None]
  - DIARRHOEA [None]
  - FAECAL INCONTINENCE [None]
  - FAECES DISCOLOURED [None]
  - STEATORRHOEA [None]
  - WEIGHT DECREASED [None]
